FAERS Safety Report 8784566 (Version 2)
Quarter: 2012Q4

REPORT INFORMATION
  Report Type: Spontaneous
  Country: GB (occurrence: None)
  Receive Date: 20120827
  Receipt Date: 20120831
  Transmission Date: 20130627
  Serious: Yes (Other)
  Sender: FDA-Public Use
  Company Number: 2012196790

PATIENT
  Age: 23 Year
  Sex: Female

DRUGS (2)
  1. FRAGMIN (DALTEPARIN SODIUM) SOLUTION FOR INJECTION [Suspect]
     Indication: PROPHYLAXIS
  2. DEPO-PROVERA (MEDROXYPROGESTERONE ACETATE) [Concomitant]

REACTIONS (1)
  - No adverse event [None]
